FAERS Safety Report 8184559-7 (Version None)
Quarter: 2012Q1

REPORT INFORMATION
  Report Type: 
  Country: None (occurrence: None)
  Receive Date: 20120305
  Receipt Date: 20120301
  Transmission Date: 20120608
  Serious: Yes (Hospitalization, Other)
  Sender: FDA-Public Use
  Company Number: US-MERCK-1110USA01105

PATIENT
  Age: 52 Year
  Sex: Female
  Weight: 66 kg

DRUGS (3)
  1. FOSAMAX [Suspect]
     Route: 048
     Dates: start: 20080305, end: 20091101
  2. FOSAMAX [Suspect]
     Indication: OSTEOPOROSIS
     Route: 048
     Dates: start: 20010901, end: 20080201
  3. FOSAMAX [Suspect]
     Route: 048
     Dates: start: 19980101

REACTIONS (49)
  - NECK PAIN [None]
  - INGROWING NAIL [None]
  - HYPERLIPIDAEMIA [None]
  - POSTMENOPAUSAL HAEMORRHAGE [None]
  - ECZEMA EYELIDS [None]
  - BENIGN NEOPLASM OF SKIN [None]
  - LOW TURNOVER OSTEOPATHY [None]
  - MUSCLE TIGHTNESS [None]
  - NAIL DYSTROPHY [None]
  - MUSCLE STRAIN [None]
  - ROAD TRAFFIC ACCIDENT [None]
  - SINUSITIS [None]
  - TENDONITIS [None]
  - DYSGEUSIA [None]
  - PATELLOFEMORAL PAIN SYNDROME [None]
  - GASTROOESOPHAGEAL REFLUX DISEASE [None]
  - DIVERTICULUM [None]
  - DIARRHOEA [None]
  - FLATULENCE [None]
  - JOINT INJURY [None]
  - COLONIC POLYP [None]
  - RIB FRACTURE [None]
  - FOOT DEFORMITY [None]
  - ABDOMINAL PAIN UPPER [None]
  - GLOSSODYNIA [None]
  - BACK PAIN [None]
  - ANAL PRURITUS [None]
  - PELVIC PAIN [None]
  - SPINAL OSTEOARTHRITIS [None]
  - UTERINE PROLAPSE [None]
  - PULMONARY HILUM MASS [None]
  - PLEURISY [None]
  - SKIN PAPILLOMA [None]
  - MUSCLE RUPTURE [None]
  - OSTEOPENIA [None]
  - ALOPECIA [None]
  - DRUG HYPERSENSITIVITY [None]
  - EXOSTOSIS [None]
  - OSTEOARTHRITIS [None]
  - ARTHRALGIA [None]
  - ROSACEA [None]
  - JOINT DISLOCATION [None]
  - ONYCHOMYCOSIS [None]
  - FEMUR FRACTURE [None]
  - HAEMORRHOIDS [None]
  - RHINITIS ALLERGIC [None]
  - DYSPEPSIA [None]
  - OVERWEIGHT [None]
  - FIBROMA [None]
